FAERS Safety Report 13333790 (Version 1)
Quarter: 2017Q1

REPORT INFORMATION
  Report Type: Spontaneous
  Country: US (occurrence: US)
  Receive Date: 20170314
  Receipt Date: 20170314
  Transmission Date: 20170428
  Serious: No
  Sender: FDA-Public Use
  Company Number: US-DEPOMED, INC.-US-2017DEP000016

PATIENT

DRUGS (2)
  1. GRALISE [Suspect]
     Active Substance: GABAPENTIN
     Indication: COMPLEX REGIONAL PAIN SYNDROME
     Dosage: 300 MG, WITH EVENING MEAL, FOLLOWING THE TITRATION SCHEDULE
     Route: 048
     Dates: start: 201202
  2. GRALISE [Suspect]
     Active Substance: GABAPENTIN
     Dosage: 1800 MG, QD, WITH EVENING MEAL
     Route: 048

REACTIONS (2)
  - Limb operation [Unknown]
  - Product use issue [Not Recovered/Not Resolved]

NARRATIVE: CASE EVENT DATE: 201202
